FAERS Safety Report 4469447-1 (Version None)
Quarter: 2004Q4

REPORT INFORMATION
  Report Type: 
  Country: None (occurrence: None)
  Receive Date: 20041005
  Receipt Date: 20041005
  Transmission Date: 20050328
  Serious: Yes (Hospitalization)
  Sender: FDA-Public Use
  Company Number: None

PATIENT
  Sex: Male

DRUGS (14)
  1. ZOLPIDEM TARTRATE [Suspect]
     Indication: BIPOLAR DISORDER
     Dosage: 10 MG  HS  ORAL
     Route: 048
  2. LORAZEPAM [Suspect]
     Indication: BIPOLAR DISORDER
     Dosage: 1 MG  QID PRN  ORAL
     Route: 048
  3. APAP TAB [Concomitant]
  4. LORATADINE [Concomitant]
  5. VIT E [Concomitant]
  6. CYANOCOBALAMIN [Concomitant]
  7. FOLIC ACID [Concomitant]
  8. PYRIDOXINE [Concomitant]
  9. SIMVASTATIN [Concomitant]
  10. THIAMINE [Concomitant]
  11. TRAZODONE HCL [Concomitant]
  12. DIPHENOXYLATE HCL + ATROPINE SULFATE [Concomitant]
  13. TOPIRMATE [Concomitant]
  14. ASPIRIN [Concomitant]

REACTIONS (3)
  - ASTHENIA [None]
  - DIFFICULTY IN WALKING [None]
  - DIZZINESS [None]
